FAERS Safety Report 15154635 (Version 2)
Quarter: 2018Q4

REPORT INFORMATION
  Report Type: Spontaneous
  Country: BR (occurrence: BR)
  Receive Date: 20180717
  Receipt Date: 20181129
  Transmission Date: 20190204
  Serious: Yes (Other)
  Sender: FDA-Public Use
  Company Number: BR-SA-2018SA184544

PATIENT
  Age: 41 Year
  Sex: Male

DRUGS (4)
  1. AVONEX [Concomitant]
     Active Substance: INTERFERON BETA-1A
  2. NATALIZUMAB [Concomitant]
     Active Substance: NATALIZUMAB
  3. AUBAGIO [Suspect]
     Active Substance: TERIFLUNOMIDE
     Dosage: UNK
  4. FINGOLIMOD. [Concomitant]
     Active Substance: FINGOLIMOD

REACTIONS (3)
  - Multiple sclerosis [Unknown]
  - Chronic inflammatory demyelinating polyradiculoneuropathy [Unknown]
  - Drug ineffective [Unknown]

NARRATIVE: CASE EVENT DATE: 20151022
